FAERS Safety Report 18562798 (Version 1)
Quarter: 2020Q4

REPORT INFORMATION
  Report Type: Spontaneous
  Country: US (occurrence: US)
  Receive Date: 20201130
  Receipt Date: 20201130
  Transmission Date: 20210114
  Serious: No
  Sender: FDA-Public Use
  Company Number: US-ROCHE-2627992

PATIENT
  Sex: Female
  Weight: 93.52 kg

DRUGS (3)
  1. LUCENTIS [Suspect]
     Active Substance: RANIBIZUMAB
     Indication: MACULAR OEDEMA
     Dosage: RECEIVED TO LEFT EYE ;
     Route: 050
     Dates: start: 201909, end: 202002
  2. LUCENTIS [Suspect]
     Active Substance: RANIBIZUMAB
     Dosage: RECEIVES IN LEFT EYE ;
     Route: 050
     Dates: start: 20200618
  3. EYLEA [Suspect]
     Active Substance: AFLIBERCEPT
     Indication: MACULAR OEDEMA
     Route: 065

REACTIONS (1)
  - Visual impairment [Unknown]
